FAERS Safety Report 8606689-5 (Version None)
Quarter: 2012Q3

REPORT INFORMATION
  Report Type: 
  Country: None (occurrence: None)
  Receive Date: 20120820
  Receipt Date: 20120807
  Transmission Date: 20120928
  Serious: Yes (Hospitalization, Other)
  Sender: FDA-Public Use
  Company Number: US-ELI_LILLY_AND_COMPANY-US201208002749

PATIENT
  Sex: Male

DRUGS (3)
  1. ANTIHYPERTENSIVES [Concomitant]
     Indication: HYPERTENSION
  2. HUMALOG MIX 75/25 [Suspect]
     Indication: DIABETES MELLITUS
     Dosage: 28 U, BID
  3. LIPID MODIFYING AGENTS [Concomitant]
     Indication: BLOOD CHOLESTEROL INCREASED

REACTIONS (17)
  - CEREBROVASCULAR ACCIDENT [None]
  - SPINAL FRACTURE [None]
  - CARDIAC PACEMAKER REPLACEMENT [None]
  - CARDIAC FAILURE CONGESTIVE [None]
  - CARDIAC PACEMAKER INSERTION [None]
  - HIP FRACTURE [None]
  - HEMIPARESIS [None]
  - INJECTION SITE HAEMATOMA [None]
  - RETINAL HAEMORRHAGE [None]
  - FEMUR FRACTURE [None]
  - DIARRHOEA [None]
  - TRANSIENT ISCHAEMIC ATTACK [None]
  - CORNEAL TRANSPLANT [None]
  - HYPOAESTHESIA [None]
  - CORONARY ARTERY BYPASS [None]
  - FALL [None]
  - VISUAL ACUITY REDUCED [None]
